FAERS Safety Report 21014302 (Version 2)
Quarter: 2022Q3

REPORT INFORMATION
  Report Type: Spontaneous
  Country: US (occurrence: US)
  Receive Date: 20220627
  Receipt Date: 20220906
  Transmission Date: 20221027
  Serious: No
  Sender: FDA-Public Use
  Company Number: US-JNJFOC-20220641200

PATIENT
  Sex: Female

DRUGS (1)
  1. XARELTO [Suspect]
     Active Substance: RIVAROXABAN
     Indication: Product used for unknown indication
     Route: 048
     Dates: start: 202110

REACTIONS (5)
  - Cough [Unknown]
  - Headache [Unknown]
  - Dyspnoea [Unknown]
  - Dyspepsia [Unknown]
  - Product label issue [Unknown]

NARRATIVE: CASE EVENT DATE: 20220618
